FAERS Safety Report 7499030-5 (Version None)
Quarter: 2011Q2

REPORT INFORMATION
  Report Type: 
  Country: None (occurrence: None)
  Receive Date: 20110524
  Receipt Date: 20101217
  Transmission Date: 20111010
  Serious: Yes (Hospitalization)
  Sender: FDA-Public Use
  Company Number: US-BAYER-201026860NA

PATIENT
  Age: 27 Year
  Sex: Female
  Weight: 84.091 kg

DRUGS (24)
  1. OXYCONTIN [Concomitant]
  2. TOPAMAX [Concomitant]
     Dosage: 2 TABS DAILY
  3. STADOL [Concomitant]
     Indication: HEADACHE
     Route: 045
  4. LORTAB [Concomitant]
     Dosage: 10 MG Q4H
  5. ADVIL LIQUI-GELS [Concomitant]
  6. ELAVIL [Concomitant]
  7. PHENTERMINE [Concomitant]
     Dosage: 15 MG (DAILY DOSE), ,
  8. MOBIC [Concomitant]
  9. LEVAQUIN [Concomitant]
     Dosage: 500 MG (DAILY DOSE), ,
  10. DURAPHEN FORTE [Concomitant]
     Indication: PULMONARY CONGESTION
     Dosage: ONE TAB Q12H
  11. ACETAMINOPHEN [Concomitant]
  12. SYNTHROID [Concomitant]
     Indication: THYROID DISORDER
  13. ALLEGRA D 24 HOUR [Concomitant]
  14. FOSAMAX [Concomitant]
     Indication: OSTEOPENIA
  15. YASMIN [Suspect]
     Indication: DYSMENORRHOEA
  16. IBUPROFEN [Concomitant]
     Indication: PAIN
  17. LEVOXYL [Concomitant]
     Indication: THYROID DISORDER
     Dosage: 200 ?G (DAILY DOSE), ,
  18. RESPIRATORY SYSTEM [Concomitant]
     Indication: SINUS CONGESTION
  19. ZYRTEC-D 12 HOUR [Concomitant]
     Dosage: 1 TAB DAILY
  20. AMITRIPTYLINE HCL [Concomitant]
  21. VISTARIL [Concomitant]
     Indication: HEADACHE
  22. YASMIN [Suspect]
     Indication: PREMENSTRUAL SYNDROME
  23. EPIDURAL INJECTION [Concomitant]
     Indication: BACK PAIN
     Dates: start: 20050901
  24. YASMIN [Suspect]
     Indication: CONTRACEPTION
     Route: 048
     Dates: start: 20030101, end: 20050101

REACTIONS (4)
  - DEEP VEIN THROMBOSIS [None]
  - THROMBOSIS [None]
  - DEPRESSION [None]
  - PAIN IN EXTREMITY [None]
